FAERS Safety Report 4871502-9 (Version None)
Quarter: 2005Q4

REPORT INFORMATION
  Report Type: 
  Country: None (occurrence: None)
  Receive Date: 20051229
  Receipt Date: 20051222
  Transmission Date: 20060501
  Serious: Yes (Other)
  Sender: FDA-Public Use
  Company Number: 0512-712

PATIENT
  Age: 77 Year
  Sex: Female
  Weight: 54.8852 kg

DRUGS (9)
  1. ALBUTEROL SULFATE AUTOHALER [Suspect]
     Indication: BRONCHITIS
     Dosage: 1 AMPULE 3X DAILY
     Dates: start: 20051201
  2. ALBUTEROL SULFATE AUTOHALER [Suspect]
     Indication: LUNG DISORDER
     Dosage: 1 AMPULE 3X DAILY
     Dates: start: 20051201
  3. INDERALL [Concomitant]
  4. ALLOPURINOL [Concomitant]
  5. INDAPAMIDE [Concomitant]
  6. LIPITOR [Concomitant]
  7. LEVOXYL [Concomitant]
  8. DETROL LA [Concomitant]
  9. KCL TABLETS [Concomitant]

REACTIONS (3)
  - CHOKING [None]
  - DYSPNOEA [None]
  - PHARMACEUTICAL PRODUCT COMPLAINT [None]
